FAERS Safety Report 6142305-2 (Version None)
Quarter: 2009Q2

REPORT INFORMATION
  Report Type: 
  Country: None (occurrence: None)
  Receive Date: 20090403
  Receipt Date: 20090324
  Transmission Date: 20091009
  Serious: Yes (Other)
  Sender: FDA-Public Use
  Company Number: FR-PFIZER-2009189843

PATIENT

DRUGS (8)
  1. DALACINE [Suspect]
     Dosage: UNK
     Dates: start: 20090101, end: 20090301
  2. TAVANIC [Concomitant]
     Indication: DEVICE RELATED INFECTION
     Dosage: UNK
     Dates: start: 20090101, end: 20090301
  3. ACEBUTOLOL [Concomitant]
     Dosage: UNK
  4. NEXIUM [Concomitant]
     Dosage: UNK
  5. FERROSTRANE [Concomitant]
     Dosage: UNK
  6. FUNGIZONE [Concomitant]
     Dosage: UNK
  7. THERALENE [Concomitant]
     Dosage: UNK
  8. ARIXTRA [Concomitant]
     Indication: PROSTHESIS IMPLANTATION
     Dosage: UNK

REACTIONS (1)
  - LIVER INJURY [None]
